FAERS Safety Report 4334158-X (Version None)
Quarter: 2004Q2

REPORT INFORMATION
  Report Type: 
  Country: None (occurrence: None)
  Receive Date: 20040402
  Receipt Date: 20040322
  Transmission Date: 20050107
  Serious: Yes (Other)
  Sender: FDA-Public Use
  Company Number: US070412

PATIENT
  Age: 27 Year
  Sex: Female

DRUGS (5)
  1. ENBREL [Suspect]
     Indication: PSORIATIC ARTHROPATHY
     Dosage: 25 MG, 2 IN 1 WEEKS, SC
     Route: 058
     Dates: start: 20030401, end: 20030901
  2. CYCLOSPORINE [Suspect]
     Dates: start: 20030301, end: 20030401
  3. PREDNISONE [Suspect]
     Dosage: 5 MG
     Dates: start: 20020901, end: 20020901
  4. SULFASALAZINE [Suspect]
     Dosage: 500 MG
     Dates: start: 20020901, end: 20020901
  5. METHOTREXATE SODIUM [Suspect]
     Dosage: 2.5 MG
     Dates: start: 20020901, end: 20020901

REACTIONS (1)
  - SYSTEMIC LUPUS ERYTHEMATOSUS [None]
